FAERS Safety Report 4270072-6 (Version None)
Quarter: 2004Q1

REPORT INFORMATION
  Report Type: 
  Country: None (occurrence: None)
  Receive Date: 20040113
  Receipt Date: 20040113
  Transmission Date: 20041129
  Serious: Yes (Hospitalization)
  Sender: FDA-Public Use
  Company Number: None

PATIENT
  Age: 73 Year
  Sex: Male

DRUGS (2)
  1. ASPIRIN [Suspect]
     Dosage: 325 MG QD
  2. CLOPIDOGREL [Suspect]
     Dosage: 75 MG QD

REACTIONS (1)
  - GASTROINTESTINAL HAEMORRHAGE [None]
